FAERS Safety Report 9372493 (Version 1)
Quarter: 2013Q2

REPORT INFORMATION
  Report Type: Report from Study
  Country: US (occurrence: US)
  Receive Date: 20130627
  Receipt Date: 20130627
  Transmission Date: 20140414
  Serious: Yes (Other)
  Sender: FDA-Public Use
  Company Number: US-MYLANLABS-2012S1026027

PATIENT
  Age: 71 Year
  Sex: Male

DRUGS (8)
  1. CLOZAPINE TABLETS [Suspect]
     Indication: BIPOLAR DISORDER
     Route: 048
     Dates: start: 20120920
  2. CLOZAPINE TABLETS [Suspect]
     Indication: BIPOLAR DISORDER
     Route: 048
     Dates: start: 20121115, end: 20121207
  3. DICYCLOMINE HCL [Concomitant]
  4. GLIPIZIDE [Concomitant]
  5. DEPAKOTE [Concomitant]
     Dates: start: 20100830
  6. SEROQUEL [Concomitant]
     Dates: start: 20090327
  7. ZOLOFT [Concomitant]
     Dates: start: 20120517
  8. XANAX [Concomitant]
     Dates: start: 20110929

REACTIONS (2)
  - Granulocytopenia [Recovered/Resolved]
  - Leukopenia [Recovered/Resolved]
